FAERS Safety Report 21064756 (Version 1)
Quarter: 2022Q3

REPORT INFORMATION
  Report Type: Spontaneous
  Country: US (occurrence: None)
  Receive Date: 20220710
  Receipt Date: 20220710
  Transmission Date: 20221027
  Serious: Yes (Other)
  Sender: FDA-Public Use
  Company Number: None

PATIENT
  Age: 69 Year
  Sex: Female

DRUGS (2)
  1. BRAFTOVI [Suspect]
     Active Substance: ENCORAFENIB
     Indication: Malignant melanoma
     Dosage: FREQUENCY : DAILY;?
     Route: 048
     Dates: start: 20200117, end: 20200703
  2. MEKTOVI [Suspect]
     Active Substance: BINIMETINIB
     Indication: Malignant melanoma
     Dosage: OTHER FREQUENCY : AM + PM DOSE;?
     Route: 048
     Dates: start: 20200117, end: 20220703

REACTIONS (2)
  - Malignant neoplasm progression [None]
  - Therapy interrupted [None]

NARRATIVE: CASE EVENT DATE: 20220710
